FAERS Safety Report 4888928-X (Version None)
Quarter: 2005Q4

REPORT INFORMATION
  Report Type: 
  Country: None (occurrence: None)
  Receive Date: 20051215
  Receipt Date: 20050603
  Transmission Date: 20060501
  Serious: Yes (Hospitalization, Other)
  Sender: FDA-Public Use
  Company Number: 2005062884

PATIENT
  Age: 52 Year
  Sex: Female
  Weight: 80.7403 kg

DRUGS (7)
  1. BEXTRA [Suspect]
     Indication: ARTHRITIS
     Dosage: 20 MG (20 MG, 1 IN 1 D), ORAL
     Route: 048
     Dates: start: 20020101, end: 20050317
  2. BEXTRA [Suspect]
     Indication: BURSITIS
     Dosage: 20 MG (20 MG, 1 IN 1 D), ORAL
     Route: 048
     Dates: start: 20020101, end: 20050317
  3. ALL OTHER THERAPEUTIC PRODUCTS (ALL OTHER THERAPEUTIC PRODUCTS) [Concomitant]
  4. PROTONIX [Concomitant]
  5. CELEXA [Concomitant]
  6. FLONASE [Concomitant]
  7. ALLEGRA [Concomitant]

REACTIONS (3)
  - JOINT SPRAIN [None]
  - OEDEMA PERIPHERAL [None]
  - THROMBOSIS [None]
